FAERS Safety Report 11719157 (Version 2)
Quarter: 2015Q4

REPORT INFORMATION
  Report Type: Spontaneous
  Country: US (occurrence: US)
  Receive Date: 20151027
  Receipt Date: 20151110
  Transmission Date: 20160304
  Serious: No
  Sender: FDA-Public Use
  Company Number: US-ELI_LILLY_AND_COMPANY-US200710005707

PATIENT
  Age: 88 Year
  Sex: Female

DRUGS (6)
  1. FORTEO [Suspect]
     Active Substance: TERIPARATIDE
     Indication: OSTEOPOROSIS
     Dosage: 20 UG, QD
  2. FORTEO [Suspect]
     Active Substance: TERIPARATIDE
     Dosage: 20 UG, QD
  3. ANALGESICS [Concomitant]
     Active Substance: UNSPECIFIED INGREDIENT
     Indication: PAIN
  4. FORTEO [Suspect]
     Active Substance: TERIPARATIDE
     Dosage: 20 UG, QD
     Dates: start: 20110801
  5. FORTEO [Suspect]
     Active Substance: TERIPARATIDE
     Dosage: 20 UG, QD
  6. FOSAMAX [Concomitant]
     Active Substance: ALENDRONATE SODIUM

REACTIONS (20)
  - Pain in extremity [Unknown]
  - Myalgia [Recovered/Resolved]
  - Gait disturbance [Unknown]
  - Drug hypersensitivity [Unknown]
  - Asthenia [Recovered/Resolved]
  - Muscle spasms [Not Recovered/Not Resolved]
  - Dental caries [Recovered/Resolved]
  - Pain [Not Recovered/Not Resolved]
  - Musculoskeletal pain [Unknown]
  - Bone pain [Not Recovered/Not Resolved]
  - Somnolence [Unknown]
  - Gastrooesophageal reflux disease [Unknown]
  - Malaise [Unknown]
  - Fatigue [Not Recovered/Not Resolved]
  - Insomnia [Not Recovered/Not Resolved]
  - Gait disturbance [Recovered/Resolved]
  - Fibromyalgia [Unknown]
  - Back pain [Unknown]
  - Arthralgia [Unknown]
  - Nausea [Not Recovered/Not Resolved]

NARRATIVE: CASE EVENT DATE: 201108
